FAERS Safety Report 23709518 (Version 3)
Quarter: 2024Q2

REPORT INFORMATION
  Report Type: Spontaneous
  Country: IT (occurrence: IT)
  Receive Date: 20240404
  Receipt Date: 20240508
  Transmission Date: 20240716
  Serious: Yes (Other)
  Sender: FDA-Public Use
  Company Number: IT-002147023-NVSC2024IT068886

PATIENT
  Sex: Female

DRUGS (4)
  1. ELTROMBOPAG [Suspect]
     Active Substance: ELTROMBOPAG
     Indication: Myelodysplastic syndrome
     Dosage: 100 MG (DAY)
     Route: 065
     Dates: start: 202202
  2. ELTROMBOPAG [Suspect]
     Active Substance: ELTROMBOPAG
     Indication: Thrombocytopenia
     Dosage: UNK
     Route: 065
     Dates: start: 202206
  3. PANTOPRAZOLE [Concomitant]
     Active Substance: PANTOPRAZOLE
     Indication: Product used for unknown indication
     Dosage: UNK
     Route: 065
  4. PANTOPRAZOLE [Concomitant]
     Active Substance: PANTOPRAZOLE
     Dosage: UNK
     Route: 065
     Dates: start: 2010

REACTIONS (6)
  - Anaemia [Recovered/Resolved with Sequelae]
  - Blood lactate dehydrogenase increased [Recovered/Resolved with Sequelae]
  - Reticulocytosis [Recovered/Resolved with Sequelae]
  - Paroxysmal nocturnal haemoglobinuria [Unknown]
  - Asthenia [Unknown]
  - Jaundice [Unknown]

NARRATIVE: CASE EVENT DATE: 20230201
